FAERS Safety Report 9382294 (Version 1)
Quarter: 2013Q3

REPORT INFORMATION
  Report Type: Spontaneous
  Country: US (occurrence: None)
  Receive Date: 20130702
  Receipt Date: 20130702
  Transmission Date: 20140515
  Serious: Yes (Other)
  Sender: FDA-Public Use
  Company Number: None

PATIENT
  Age: 24 Year
  Sex: Male
  Weight: 105 kg

DRUGS (1)
  1. LEVETIRACETAM [Suspect]

REACTIONS (4)
  - Sedation [None]
  - Drug effect decreased [None]
  - Product substitution issue [None]
  - Therapeutic response unexpected with drug substitution [None]
